FAERS Safety Report 20558066 (Version 1)
Quarter: 2022Q1

REPORT INFORMATION
  Report Type: Report from Study
  Country: JP (occurrence: None)
  Receive Date: 20220307
  Receipt Date: 20220307
  Transmission Date: 20220423
  Serious: Yes (Hospitalization)
  Sender: FDA-Public Use
  Company Number: 2022A068233

PATIENT
  Age: 69 Year
  Sex: Female
  Weight: 53.5 kg

DRUGS (10)
  1. OLAPARIB [Suspect]
     Active Substance: OLAPARIB
     Indication: Ovarian epithelial cancer
     Dosage: 300 MILLIGRAM, BID
     Route: 048
     Dates: start: 20210412, end: 20220128
  2. OLAPARIB [Suspect]
     Active Substance: OLAPARIB
     Indication: Ovarian epithelial cancer
     Dosage: 300 MILLIGRAM, BID
     Route: 048
     Dates: start: 20220129, end: 20220129
  3. PEMBROLIZUMAB [Suspect]
     Active Substance: PEMBROLIZUMAB
     Indication: Ovarian epithelial cancer
     Dosage: 200 MILLIGRAM, Q3W
     Route: 042
     Dates: start: 20210412, end: 20211227
  4. PEMBROLIZUMAB [Suspect]
     Active Substance: PEMBROLIZUMAB
     Indication: Ovarian epithelial cancer
     Dosage: 200 MILLIGRAM, Q3W
     Route: 042
     Dates: start: 20220124, end: 20220124
  5. ACETAMINOPHEN [Concomitant]
     Active Substance: ACETAMINOPHEN
     Indication: Cancer pain
     Dosage: [1] , UNKNOWN
     Dates: start: 20201002
  6. ACETAMINOPHEN [Concomitant]
     Active Substance: ACETAMINOPHEN
     Indication: Headache
     Dosage: [1] , UNKNOWN
     Dates: start: 20201002
  7. MAGNESIUM OXIDE [Concomitant]
     Active Substance: MAGNESIUM OXIDE
     Indication: Constipation
     Dosage: [2] , UNKNOWN
     Dates: start: 20201002
  8. HEPARINOID [Concomitant]
     Indication: Alopecia
     Dosage: [3] 0.3 %, PRN
     Route: 003
     Dates: start: 20201111
  9. ZOLPIDEM TARTRATE [Concomitant]
     Active Substance: ZOLPIDEM TARTRATE
     Dosage: [43] 5 MG, PRN
     Route: 048
     Dates: start: 20220124
  10. ACECLOFENAC\ACETAMINOPHEN [Concomitant]
     Active Substance: ACECLOFENAC\ACETAMINOPHEN
     Dosage: UNK
     Dates: start: 20201002

REACTIONS (3)
  - Enteritis [Recovered/Resolved]
  - Bacteraemia [Recovering/Resolving]
  - Drug eruption [Recovering/Resolving]

NARRATIVE: CASE EVENT DATE: 20220204
